FAERS Safety Report 8281486-1 (Version None)
Quarter: 2012Q2

REPORT INFORMATION
  Report Type: 
  Country: None (occurrence: None)
  Receive Date: 20120413
  Receipt Date: 20120411
  Transmission Date: 20120825
  Serious: Yes (Hospitalization)
  Sender: FDA-Public Use
  Company Number: US-PFIZER INC-2012090632

PATIENT
  Sex: Female

DRUGS (1)
  1. LYRICA [Suspect]
     Indication: NEUROPATHY PERIPHERAL
     Dosage: 150 MG, 2X/DAY

REACTIONS (7)
  - APHAGIA [None]
  - MYOCARDIAL INFARCTION [None]
  - CEREBRAL HAEMORRHAGE [None]
  - VOMITING [None]
  - CEREBROVASCULAR ACCIDENT [None]
  - MALAISE [None]
  - DYSGEUSIA [None]
